FAERS Safety Report 10812318 (Version 1)
Quarter: 2015Q1

REPORT INFORMATION
  Report Type: Spontaneous
  Country: IT (occurrence: IT)
  Receive Date: 20150218
  Receipt Date: 20150218
  Transmission Date: 20150721
  Serious: Yes (Hospitalization)
  Sender: FDA-Public Use
  Company Number: IT-ASTRAZENECA-2015SE13854

PATIENT
  Age: 31778 Day
  Sex: Female

DRUGS (9)
  1. SEROQUEL [Suspect]
     Active Substance: QUETIAPINE FUMARATE
     Route: 048
     Dates: start: 20140701, end: 20150206
  2. PLAVIX ^75^ (CLOPIDOGREL) [Concomitant]
     Dosage: 75 MG FILM COATED TABLET
  3. DONEPEZIL [Concomitant]
     Active Substance: DONEPEZIL
  4. CITALOPRAM [Concomitant]
     Active Substance: CITALOPRAM HYDROBROMIDE
  5. LOPRESOR (METOPROLOL) [Concomitant]
     Dosage: 100 MG FILM COATED TABLET
  6. COMBISARTAN (VALSARTAN+HCTZ) [Concomitant]
     Dosage: 80 MG+12.5 MG FILM COATRED TABLET
  7. LANSOPRAZOLE. [Concomitant]
     Active Substance: LANSOPRAZOLE
  8. ATORVASTATIN [Concomitant]
     Active Substance: ATORVASTATIN
  9. ZANEDIP (LERCANIDIPINE) [Concomitant]
     Dosage: 20 MG FILM COATED TABLET

REACTIONS (1)
  - Long QT syndrome [Unknown]

NARRATIVE: CASE EVENT DATE: 20150206
